FAERS Safety Report 16944055 (Version 1)
Quarter: 2019Q4

REPORT INFORMATION
  Report Type: Report from Study
  Country: None (occurrence: US)
  Receive Date: 20191022
  Receipt Date: 20191022
  Transmission Date: 20200122
  Serious: Yes (Other)
  Sender: FDA-Public Use
  Company Number: US-ABBVIE-19K-163-2889590-00

PATIENT
  Age: 45 Year
  Sex: Male

DRUGS (2)
  1. HUMIRA [Suspect]
     Active Substance: ADALIMUMAB
     Indication: PSORIASIS
  2. HUMIRA [Suspect]
     Active Substance: ADALIMUMAB
     Indication: PSORIATIC ARTHROPATHY
     Route: 058

REACTIONS (2)
  - Limb injury [Recovered/Resolved]
  - Meniscus injury [Recovered/Resolved]

NARRATIVE: CASE EVENT DATE: 201908
